FAERS Safety Report 8481939-7 (Version None)
Quarter: 2012Q3

REPORT INFORMATION
  Report Type: 
  Country: None (occurrence: None)
  Receive Date: 20120702
  Receipt Date: 20120627
  Transmission Date: 20120928
  Serious: Yes (Life-Threatening, Hospitalization, Other)
  Sender: FDA-Public Use
  Company Number: JP-ASTRAZENECA-2012SE39125

PATIENT
  Age: 49 Year
  Sex: Male
  Weight: 67 kg

DRUGS (6)
  1. ANTIDIABETIC AGENTS [Concomitant]
     Dosage: DOSE UNKNOWN
     Route: 065
  2. HYPNOTICS AND SEDATIVES, ANTIANXIETICS [Concomitant]
     Dosage: DOSE UNKNOWN
     Route: 065
  3. FELODIPINE [Suspect]
     Indication: HYPERTENSION
     Dosage: 140 MG
     Route: 048
     Dates: start: 20120611, end: 20120611
  4. LONASEN [Suspect]
     Indication: SCHIZOPHRENIA
     Dosage: 224 MG
     Route: 048
     Dates: start: 20120611, end: 20120611
  5. LEXOTAN [Suspect]
     Indication: DEPRESSION
     Dosage: 140 MG
     Route: 048
     Dates: start: 20120611, end: 20120611
  6. TOLEDOMIN [Suspect]
     Dosage: 1400 MG
     Route: 048
     Dates: start: 20120611, end: 20120611

REACTIONS (3)
  - HYPOTENSION [None]
  - OVERDOSE [None]
  - COMA [None]
